FAERS Safety Report 16255112 (Version 1)
Quarter: 2019Q2

REPORT INFORMATION
  Report Type: Spontaneous
  Country: SE (occurrence: SE)
  Receive Date: 20190430
  Receipt Date: 20190430
  Transmission Date: 20190711
  Serious: Yes (Hospitalization)
  Sender: FDA-Public Use
  Company Number: SE-BIODELIVERY SCIENCES INTERNATIONAL-2019BDSI0338

PATIENT
  Age: 69 Year
  Sex: Male

DRUGS (4)
  1. TAPENTADOL HYDROCHLORIDE [Suspect]
     Active Substance: TAPENTADOL HYDROCHLORIDE
     Indication: POLYNEUROPATHY
     Route: 065
     Dates: end: 2018
  2. FENTANYL CITRATE. [Suspect]
     Active Substance: FENTANYL CITRATE
     Indication: POLYNEUROPATHY
     Route: 065
     Dates: end: 2018
  3. MIRTAZAPINE. [Suspect]
     Active Substance: MIRTAZAPINE
     Indication: POLYNEUROPATHY
     Route: 065
     Dates: end: 2018
  4. ESCITALOPRAM [Suspect]
     Active Substance: ESCITALOPRAM OXALATE
     Indication: POLYNEUROPATHY
     Route: 065
     Dates: end: 2018

REACTIONS (1)
  - Serotonin syndrome [Recovered/Resolved]

NARRATIVE: CASE EVENT DATE: 20180729
